FAERS Safety Report 9098205 (Version 1)
Quarter: 2013Q1

REPORT INFORMATION
  Report Type: Spontaneous
  Country: IT (occurrence: IT)
  Receive Date: 20130213
  Receipt Date: 20130213
  Transmission Date: 20140127
  Serious: Yes (Other)
  Sender: FDA-Public Use
  Company Number: PHHY2013IT012920

PATIENT
  Age: 54 Year
  Sex: Female

DRUGS (6)
  1. EPIRUBICIN [Suspect]
     Indication: BREAST CANCER
     Dosage: 130 MG,CYCLIC
     Route: 042
     Dates: start: 20121206, end: 20130110
  2. 5-FLUOROURACIL [Suspect]
     Indication: BREAST CANCER
     Dosage: 860 MG, CYCLIC
     Route: 042
     Dates: start: 20121206, end: 20130110
  3. CYCLOPHOSPHAMIDE [Suspect]
     Indication: BREAST CANCER
     Dosage: 860 MG, CYCLIC
     Route: 042
     Dates: start: 20121206, end: 20130110
  4. TENORETIC [Concomitant]
  5. XANAX [Concomitant]
  6. TAVOR (LORAZEPAM) [Concomitant]

REACTIONS (3)
  - Neutropenia [Unknown]
  - Asthenia [Unknown]
  - Nausea [Unknown]
